FAERS Safety Report 5064099-4 (Version None)
Quarter: 2006Q3

REPORT INFORMATION
  Report Type: 
  Country: None (occurrence: None)
  Receive Date: 20060706
  Receipt Date: 20060512
  Transmission Date: 20061208
  Serious: No
  Sender: FDA-Public Use
  Company Number: 200613118BWH

PATIENT
  Age: 51 Year
  Sex: Male

DRUGS (5)
  1. LEVITRA [Suspect]
     Indication: ERECTILE DYSFUNCTION
     Dosage: 10 MG, ONCE, ORAL
     Route: 048
     Dates: start: 20060401
  2. LEVITRA [Suspect]
     Indication: ERECTILE DYSFUNCTION
     Dosage: 10 MG, ONCE, ORAL
     Route: 048
     Dates: start: 20060506
  3. KALETRA [Concomitant]
  4. TRUVADA [Concomitant]
  5. VITAMINS [Concomitant]

REACTIONS (3)
  - EYE PAIN [None]
  - NASAL CONGESTION [None]
  - SWELLING FACE [None]
